FAERS Safety Report 25041242 (Version 2)
Quarter: 2025Q1

REPORT INFORMATION
  Report Type: Report from Study
  Country: US (occurrence: US)
  Receive Date: 20250305
  Receipt Date: 20250306
  Transmission Date: 20250409
  Serious: Yes (Hospitalization, Other)
  Sender: UCB
  Company Number: US-UCBSA-2025012251

PATIENT
  Sex: Male

DRUGS (2)
  1. FINTEPLA [Suspect]
     Active Substance: FENFLURAMINE
     Indication: Lennox-Gastaut syndrome
     Dates: start: 20230420
  2. FINTEPLA [Suspect]
     Active Substance: FENFLURAMINE
     Dosage: 4.3 MILLILITER, 2X/DAY (BID)
     Dates: start: 20230420

REACTIONS (3)
  - Seizure [Not Recovered/Not Resolved]
  - Eye operation [Not Recovered/Not Resolved]
  - Dry skin [Not Recovered/Not Resolved]
